FAERS Safety Report 5011519-7 (Version None)
Quarter: 2006Q2

REPORT INFORMATION
  Report Type: 
  Country: None (occurrence: None)
  Receive Date: 20060524
  Receipt Date: 20060518
  Transmission Date: 20061013
  Serious: Yes (Other)
  Sender: FDA-Public Use
  Company Number: US-2006-012198

PATIENT
  Age: 31 Year
  Sex: Female
  Weight: 83 kg

DRUGS (8)
  1. MIRENA [Suspect]
     Indication: CONTRACEPTION
     Dosage: 20 UG/DAY, CONT, INTRA-UTERINE
     Route: 015
     Dates: start: 20040101
  2. GINKGO BILOBA (GINKGO BILOBA) [Concomitant]
  3. VALERIAN EXTRACT (VALERIANA OFFCINALIS EXTRACT) [Concomitant]
  4. TURMERIC (CURCUMA LONGA RHIZOME) [Concomitant]
  5. COQ10 (UBIDECARENONE) [Concomitant]
  6. L-GLUTAMINIC ACID [Concomitant]
  7. ECHINACEA EXTRACT (ECHINACEA PURPUREA EXTRACT) [Concomitant]
  8. MELATONIN [Concomitant]

REACTIONS (2)
  - CONDITION AGGRAVATED [None]
  - CONVULSION [None]
